FAERS Safety Report 9311408 (Version 2)
Quarter: 2014Q1

REPORT INFORMATION
  Report Type: Spontaneous
  Country: US (occurrence: US)
  Receive Date: 20130528
  Receipt Date: 20140128
  Transmission Date: 20141002
  Serious: Yes (Other)
  Sender: FDA-Public Use
  Company Number: US-BAYER-2013-064403

PATIENT
  Age: 25 Year
  Sex: Female

DRUGS (5)
  1. YAZ [Suspect]
     Dosage: UNK
     Dates: start: 20070509, end: 200904
  2. YASMIN [Suspect]
     Dosage: UNK
     Dates: start: 20070509, end: 200904
  3. MIRTAZAPINE [Concomitant]
     Dosage: 30 MG, UNK
     Route: 048
     Dates: start: 20081124
  4. CYMBALTA [Concomitant]
     Dosage: 30 MG, UNK
     Route: 048
     Dates: start: 20081124
  5. ETODOLAC [Concomitant]
     Dosage: 400 MG, UNK
     Route: 048
     Dates: start: 20090115

REACTIONS (8)
  - Cholelithiasis [None]
  - Cholecystitis acute [None]
  - Nephrolithiasis [None]
  - Injury [None]
  - Pain [None]
  - Emotional distress [None]
  - Anxiety [None]
  - Psychological trauma [None]
